FAERS Safety Report 7108937-X (Version None)
Quarter: 2011Q1

REPORT INFORMATION
  Report Type: 
  Country: None (occurrence: None)
  Receive Date: 20101112
  Receipt Date: 20101102
  Transmission Date: 20110831
  Serious: No
  Sender: FDA-Public Use
  Company Number: TIF2010A00113

PATIENT
  Age: 50 Year
  Sex: Male

DRUGS (1)
  1. PIOGLITAZONE HYDROCHI.ORIDE,METFORMIN HYDROCHLORIDE [Suspect]

REACTIONS (1)
  - DYSENTERY [None]
